FAERS Safety Report 6232870-9 (Version None)
Quarter: 2009Q2

REPORT INFORMATION
  Report Type: 
  Country: None (occurrence: None)
  Receive Date: 20090617
  Receipt Date: 20090309
  Transmission Date: 20091009
  Serious: No
  Sender: FDA-Public Use
  Company Number: US-ASTRAZENECA-2009UW06265

PATIENT
  Sex: Female

DRUGS (2)
  1. FASLODEX [Suspect]
     Route: 030
     Dates: start: 20070101
  2. XELODA [Concomitant]

REACTIONS (4)
  - BREAST MASS [None]
  - HOT FLUSH [None]
  - OROPHARYNGEAL PAIN [None]
  - SCIATICA [None]
